FAERS Safety Report 7522067-4 (Version None)
Quarter: 2011Q2

REPORT INFORMATION
  Report Type: 
  Country: None (occurrence: None)
  Receive Date: 20110520
  Receipt Date: 20110324
  Transmission Date: 20111010
  Serious: Yes (Other)
  Sender: FDA-Public Use
  Company Number: 2011028002

PATIENT
  Age: 34 Year
  Sex: Female
  Weight: 108.8633 kg

DRUGS (31)
  1. CARISOPRODOL (CARISOPRODOL) [Concomitant]
  2. PROVERA [Concomitant]
  3. COUMADIN [Concomitant]
  4. CLARITIN [Concomitant]
  5. ONDANSETRON [Concomitant]
  6. PROVIGIL [Concomitant]
  7. HIZENTRA [Suspect]
     Dosage: (10 G 1X/WEEK, 50 ML SUBCUTANEOUS)
     Route: 058
     Dates: start: 20100603
  8. HIZENTRA [Suspect]
     Dosage: (10 G 1X/WEEK, 50 ML SUBCUTANEOUS)
     Route: 058
     Dates: start: 20110201
  9. PATANOL [Concomitant]
  10. SINGULAIR [Concomitant]
  11. BACLOFEN [Concomitant]
  12. PROVENTIL HFA (SALBUTAMOL) [Concomitant]
  13. CITALOPRAM HYDROBROMIDE [Concomitant]
  14. OPANA (HOPANTENATE CALCIUM) [Concomitant]
  15. XOLAIR (AMALIZUMAB) [Concomitant]
  16. DILAUDID [Concomitant]
  17. OMEPRAZOLE [Concomitant]
  18. FLONASE [Concomitant]
  19. ALBUTEROL [Concomitant]
  20. LORAZEPAM [Concomitant]
  21. AMITRIPTYLINE HCL (AMITRIPTYLINE) [Concomitant]
  22. AXERT [Concomitant]
  23. TORSEMIDE [Concomitant]
  24. ADVAIR DISKUS 100/50 [Concomitant]
  25. METOPROLOL TARTRATE [Concomitant]
  26. HIZENTRA [Suspect]
  27. LUNESTA [Concomitant]
  28. BUPROPION (BUPROPION) [Concomitant]
  29. NITRODERM [Concomitant]
  30. AZITHROMYCIN [Concomitant]
  31. ABILIFY [Concomitant]

REACTIONS (2)
  - PAIN [None]
  - URINARY TRACT INFECTION [None]
